FAERS Safety Report 7798358-9 (Version None)
Quarter: 2011Q4

REPORT INFORMATION
  Report Type: 
  Country: None (occurrence: None)
  Receive Date: 20111005
  Receipt Date: 20110928
  Transmission Date: 20120403
  Serious: Yes (Disabling)
  Sender: FDA-Public Use
  Company Number: GB-BAYER-2011-094566

PATIENT
  Age: 70 Year
  Sex: Male
  Weight: 82 kg

DRUGS (2)
  1. CIPROFLOXACIN HCL [Suspect]
     Indication: PROPHYLAXIS
  2. CIPROFLOXACIN HCL [Suspect]
     Indication: BIOPSY
     Dosage: 250 MG, UNK
     Route: 048
     Dates: start: 20110913, end: 20110916

REACTIONS (1)
  - DIPLOPIA [None]
